FAERS Safety Report 19381576 (Version 1)
Quarter: 2021Q2

REPORT INFORMATION
  Report Type: Spontaneous
  Country: MX (occurrence: MX)
  Receive Date: 20210607
  Receipt Date: 20210607
  Transmission Date: 20210717
  Serious: Yes (Hospitalization)
  Sender: FDA-Public Use
  Company Number: MX-LUPIN PHARMACEUTICALS INC.-2021-08679

PATIENT
  Age: 24 Year
  Sex: Female

DRUGS (8)
  1. VALPROATE [Suspect]
     Active Substance: VALPROIC ACID
     Indication: PSYCHOGENIC MOVEMENT DISORDER
     Dosage: 600 MILLIGRAM, TID (STOPPED)
     Route: 065
  2. LEVETIRACETAM. [Suspect]
     Active Substance: LEVETIRACETAM
     Indication: OPISTHOTONUS
     Dosage: 1500 MILLIGRAM, BID (STOPPED)
     Route: 065
  3. VALPROATE [Suspect]
     Active Substance: VALPROIC ACID
     Indication: OPISTHOTONUS
  4. LEVETIRACETAM. [Suspect]
     Active Substance: LEVETIRACETAM
     Indication: PSYCHOGENIC MOVEMENT DISORDER
  5. ESCITALOPRAM [Suspect]
     Active Substance: ESCITALOPRAM OXALATE
     Indication: PSYCHOGENIC MOVEMENT DISORDER
  6. PHENYTOIN SODIUM. [Suspect]
     Active Substance: PHENYTOIN SODIUM
     Indication: PSYCHOGENIC MOVEMENT DISORDER
     Dosage: 100 MILLIGRAM, TID (STOPPED)
     Route: 065
  7. PHENYTOIN SODIUM. [Suspect]
     Active Substance: PHENYTOIN SODIUM
     Indication: OPISTHOTONUS
  8. ESCITALOPRAM [Suspect]
     Active Substance: ESCITALOPRAM OXALATE
     Indication: OPISTHOTONUS
     Dosage: 20 MILLIGRAM, QD (STOPPED)
     Route: 065

REACTIONS (1)
  - Drug ineffective [Unknown]
